FAERS Safety Report 15900701 (Version 1)
Quarter: 2019Q1

REPORT INFORMATION
  Report Type: Spontaneous
  Country: PL (occurrence: PL)
  Receive Date: 20190201
  Receipt Date: 20190201
  Transmission Date: 20190417
  Serious: Yes (Hospitalization)
  Sender: FDA-Public Use
  Company Number: PL-ASTRAZENECA-2019SE18729

PATIENT
  Age: 6 Month
  Sex: Male

DRUGS (1)
  1. SYNAGIS [Suspect]
     Active Substance: PALIVIZUMAB
     Indication: ANTIVIRAL PROPHYLAXIS
     Dosage: UNKNOWN DOSE ON 12-OCT-2018; UNKNOWN DOSE ON 16-NOV-2018; UNKNOWN DOSE ON 13-DEC-2018. (MONTHLY)
     Route: 030

REACTIONS (3)
  - Upper respiratory tract infection [Unknown]
  - Respiratory syncytial virus infection [Unknown]
  - Laryngitis [Unknown]

NARRATIVE: CASE EVENT DATE: 201901
